FAERS Safety Report 15366853 (Version 2)
Quarter: 2019Q1

REPORT INFORMATION
  Report Type: Spontaneous
  Country: US (occurrence: US)
  Receive Date: 20180910
  Receipt Date: 20190304
  Transmission Date: 20190417
  Serious: No
  Sender: FDA-Public Use
  Company Number: US-PFIZER INC-2018362634

PATIENT
  Age: 8 Year
  Sex: Male
  Weight: 25.4 kg

DRUGS (1)
  1. GENOTROPIN MQ [Suspect]
     Active Substance: SOMATROPIN
     Indication: GROWTH RETARDATION
     Dosage: 1 MG, DAILY ROTATE FROM UPPER BUTTOCKS, ARM AND THIGH AND OTHER SIDE EVERY NIGHT

REACTIONS (2)
  - Pharyngitis streptococcal [Recovered/Resolved]
  - Conjunctivitis [Recovered/Resolved]
